FAERS Safety Report 15411366 (Version 1)
Quarter: 2018Q3

REPORT INFORMATION
  Report Type: Spontaneous
  Country: US (occurrence: US)
  Receive Date: 20180921
  Receipt Date: 20180921
  Transmission Date: 20181010
  Serious: No
  Sender: FDA-Public Use
  Company Number: US-RECKITT BENCKISER HEALTHCARE INT LIMITED-RB-81647-2018

PATIENT
  Sex: Female

DRUGS (1)
  1. MUCINEX [Suspect]
     Active Substance: GUAIFENESIN
     Indication: CHRONIC SINUSITIS
     Dosage: UNK UNK, QD
     Route: 065

REACTIONS (2)
  - Off label use [Unknown]
  - Incorrect drug administration duration [Unknown]
